FAERS Safety Report 6217115-8 (Version None)
Quarter: 2009Q2

REPORT INFORMATION
  Report Type: 
  Country: None (occurrence: None)
  Receive Date: 20090606
  Receipt Date: 20090525
  Transmission Date: 20091009
  Serious: Yes (Disabling)
  Sender: FDA-Public Use
  Company Number: AU-PFIZER INC-2009195540

PATIENT

DRUGS (5)
  1. CHAMPIX [Suspect]
     Indication: SMOKING CESSATION THERAPY
     Dosage: 1 MG, 2X/DAY
     Route: 048
     Dates: start: 20081101, end: 20081101
  2. PREDNISONE [Concomitant]
     Indication: PERICARDITIS
     Dosage: 8 MG, 1X/DAY
     Route: 048
  3. PREDNISONE [Concomitant]
     Indication: ADRENAL DISORDER
  4. ALCOHOL [Concomitant]
  5. LEXAPRO [Concomitant]
     Dosage: 20 MG, UNK

REACTIONS (2)
  - CATATONIA [None]
  - DEPRESSED MOOD [None]
